FAERS Safety Report 6356548-6 (Version None)
Quarter: 2009Q3

REPORT INFORMATION
  Report Type: 
  Country: None (occurrence: None)
  Receive Date: 20090915
  Receipt Date: 20090902
  Transmission Date: 20100115
  Serious: Yes (Hospitalization)
  Sender: FDA-Public Use
  Company Number: AU-KINGPHARMUSA00001-K200901088

PATIENT
  Age: 80 Year
  Sex: Male

DRUGS (16)
  1. ALTACE [Suspect]
     Dosage: 7.5 MG, QD
  2. FUROSEMIDE [Suspect]
     Dosage: 40 MG, QD
  3. FUROSEMIDE [Suspect]
     Dosage: 40 MG, BID
  4. MELOXICAM [Suspect]
     Dosage: 7.5 MG, QD
  5. ALLOPURINOL [Suspect]
     Dosage: 100 MG, QD
  6. ALLOPURINOL [Suspect]
     Dosage: 100 MG, QD
  7. ALLOPURINOL [Suspect]
     Dosage: 150 MG, QD
  8. ASPIRIN [Concomitant]
     Dosage: 100 MG, QD
  9. GLYCERYL TRINITRATE [Concomitant]
     Dosage: I-II, PRN
     Route: 060
  10. CALCIUM [Concomitant]
     Dosage: 600 MG, QD
  11. OSTELIN [Concomitant]
     Dosage: 1000 IU, QD
  12. SIMVASTATIN [Concomitant]
     Dosage: 20 MG, QPM
  13. PREDNISONE [Suspect]
     Dosage: 10 MG, QD
  14. PREDNISONE [Suspect]
     Dosage: 7.5 MG, QD
  15. PREDNISONE [Suspect]
     Dosage: 5 MG, QD
  16. PREDNISONE [Suspect]
     Dosage: 2.5 MG, QID

REACTIONS (7)
  - ABASIA [None]
  - CELLULITIS [None]
  - GOUT [None]
  - GOUTY TOPHUS [None]
  - JOINT SWELLING [None]
  - PAIN IN EXTREMITY [None]
  - RENAL FAILURE ACUTE [None]
